FAERS Safety Report 7509372-2 (Version None)
Quarter: 2011Q2

REPORT INFORMATION
  Report Type: 
  Country: None (occurrence: None)
  Receive Date: 20110527
  Receipt Date: 20110429
  Transmission Date: 20111010
  Serious: No
  Sender: FDA-Public Use
  Company Number: US-BAYER-2011-038352

PATIENT

DRUGS (3)
  1. ANTACIDS [Concomitant]
     Dosage: UNK
  2. TAGAMET [Concomitant]
  3. ALEVE (CAPLET) [Suspect]
     Indication: BACK PAIN
     Route: 048

REACTIONS (1)
  - BLOOD URINE PRESENT [None]
